FAERS Safety Report 17040355 (Version 1)
Quarter: 2019Q4

REPORT INFORMATION
  Report Type: Spontaneous
  Country: US (occurrence: US)
  Receive Date: 20191117
  Receipt Date: 20191117
  Transmission Date: 20200122
  Serious: No
  Sender: FDA-Public Use
  Company Number: US-TORRENT-00007613

PATIENT
  Sex: Female

DRUGS (1)
  1. LOSARTAN POTASSIUM TABLETS [Suspect]
     Active Substance: LOSARTAN POTASSIUM
     Indication: PRODUCT USED FOR UNKNOWN INDICATION
     Dosage: TAKING 50 MG OF LOSARTAN POTASSIUM BY BREAKING LOSARTAN POTASSIUM 100 MG TABLETS TO HALF

REACTIONS (1)
  - Wrong technique in product usage process [Unknown]
